FAERS Safety Report 9019869 (Version 1)
Quarter: 2013Q1

REPORT INFORMATION
  Report Type: Spontaneous
  Country: DK (occurrence: DK)
  Receive Date: 20130118
  Receipt Date: 20130118
  Transmission Date: 20140127
  Serious: Yes (Other)
  Sender: FDA-Public Use
  Company Number: DK-EISAI INC-E7389-03446-SPO-DK

PATIENT
  Sex: Male

DRUGS (9)
  1. XELODA [Suspect]
     Indication: BREAST CANCER
     Dosage: UNKNOWN
     Route: 065
  2. HALAVEN [Suspect]
     Indication: BREAST CANCER
     Dosage: UNKNOWN
     Route: 041
  3. CARBOPLATIN [Suspect]
     Indication: BREAST CANCER
     Route: 065
  4. GEMCITABINE [Suspect]
     Indication: BREAST CANCER
     Dosage: UNKNOWN
     Route: 065
  5. HERCEPTIN [Suspect]
     Indication: BREAST CANCER
     Route: 065
  6. TAXOL [Suspect]
     Indication: BREAST CANCER
     Dosage: UNKNOWN
     Route: 065
  7. TAXOTERE [Suspect]
     Indication: BREAST CANCER
     Dosage: UNKNOWN
     Route: 065
  8. TYVERB [Suspect]
     Indication: BREAST CANCER
     Route: 065
  9. VINORELBINE [Suspect]
     Indication: BREAST CANCER
     Route: 065

REACTIONS (1)
  - Disease progression [Unknown]
